FAERS Safety Report 4571433-8 (Version None)
Quarter: 2005Q1

REPORT INFORMATION
  Report Type: 
  Country: None (occurrence: None)
  Receive Date: 20050207
  Receipt Date: 20050126
  Transmission Date: 20050727
  Serious: Yes (Hospitalization)
  Sender: FDA-Public Use
  Company Number: US-JNJFOC-20050106550

PATIENT
  Sex: Male
  Weight: 111.59 kg

DRUGS (14)
  1. INFLIXIMAB [Suspect]
     Route: 042
  2. INFLIXIMAB [Suspect]
     Route: 042
  3. INFLIXIMAB [Suspect]
     Route: 042
  4. INFLIXIMAB [Suspect]
     Route: 042
  5. INFLIXIMAB [Suspect]
     Route: 042
  6. INFLIXIMAB [Suspect]
     Route: 042
  7. INFLIXIMAB [Suspect]
     Route: 042
  8. INFLIXIMAB [Suspect]
     Route: 042
  9. INFLIXIMAB [Suspect]
     Indication: CROHN'S DISEASE
     Route: 042
  10. MERCAPTOPURINE [Concomitant]
     Indication: CROHN'S DISEASE
  11. MESALAMINE [Concomitant]
     Indication: CROHN'S DISEASE
  12. ANTIBIOTICS [Concomitant]
     Indication: CROHN'S DISEASE
  13. BUDESONIDE [Concomitant]
     Indication: CROHN'S DISEASE
  14. NARCOTIC ANALGESICS [Concomitant]
     Indication: CROHN'S DISEASE

REACTIONS (5)
  - CONDITION AGGRAVATED [None]
  - CROHN'S DISEASE [None]
  - RECURRENT CANCER [None]
  - SQUAMOUS CELL CARCINOMA [None]
  - TONGUE NEOPLASM MALIGNANT STAGE UNSPECIFIED [None]
